FAERS Safety Report 4330723-4 (Version None)
Quarter: 2004Q1

REPORT INFORMATION
  Report Type: 
  Country: None (occurrence: None)
  Receive Date: 20040331
  Receipt Date: 20040323
  Transmission Date: 20041129
  Serious: Yes (Hospitalization)
  Sender: FDA-Public Use
  Company Number: GBWYE664925MAR04

PATIENT
  Age: 18 Year
  Sex: Male

DRUGS (2)
  1. ADVIL [Suspect]
     Indication: TONSILLITIS
     Dosage: 400 MG 4X PER 1 DAY
     Route: 048
     Dates: start: 20040209, end: 20040214
  2. ACETAMINOPHEN [Concomitant]

REACTIONS (5)
  - ALCOHOL INTERACTION [None]
  - FAECES DISCOLOURED [None]
  - GASTROINTESTINAL HAEMORRHAGE [None]
  - HAEMOGLOBIN DECREASED [None]
  - WHITE BLOOD CELL COUNT INCREASED [None]
